FAERS Safety Report 23481523 (Version 1)
Quarter: 2024Q1

REPORT INFORMATION
  Report Type: Spontaneous
  Country: US (occurrence: None)
  Receive Date: 20240202
  Receipt Date: 20240202
  Transmission Date: 20240410
  Serious: Yes (Hospitalization)
  Sender: FDA-Public Use
  Company Number: None

PATIENT
  Sex: Female

DRUGS (1)
  1. PROLIA [Suspect]
     Active Substance: DENOSUMAB
     Indication: Osteoporosis
     Dosage: 60MG EVERY 6 MONTHS EVERY 6 MONTHS UNDER THE SKIN?
     Route: 058
     Dates: start: 20230131

REACTIONS (3)
  - Thrombosis [None]
  - Fall [None]
  - Patella fracture [None]
